FAERS Safety Report 6703409-6 (Version None)
Quarter: 2010Q2

REPORT INFORMATION
  Report Type: 
  Country: None (occurrence: None)
  Receive Date: 20100430
  Receipt Date: 20100416
  Transmission Date: 20101027
  Serious: Yes (Hospitalization)
  Sender: FDA-Public Use
  Company Number: US-RANBAXY-2010US-33309

PATIENT

DRUGS (29)
  1. GANCICLOVIR [Suspect]
     Indication: ANTIVIRAL PROPHYLAXIS
     Dosage: 1000 MG, 3 IN 1 D
     Route: 048
     Dates: start: 20080521, end: 20080701
  2. GANCICLOVIR [Suspect]
     Dosage: 500 MG 3 IN 1 D
     Route: 048
     Dates: start: 20080701, end: 20080701
  3. GANCICLOVIR [Suspect]
     Dosage: 1000 MG, 3 IN 1 D
     Route: 048
     Dates: start: 20080701, end: 20080825
  4. MARIBAVIR (PLACEBO) [Suspect]
     Indication: ANTIVIRAL PROPHYLAXIS
     Dosage: 100 MG, BID
     Route: 048
     Dates: start: 20080521, end: 20080825
  5. ACYCLOVIR (PLACEBO) [Suspect]
     Indication: ANTIVIRAL PROPHYLAXIS
     Dosage: 400 MG 2 IN 1 D
     Route: 048
     Dates: start: 20080521, end: 20080825
  6. PROGRAF [Concomitant]
     Indication: PROPHYLAXIS AGAINST TRANSPLANT REJECTION
     Dosage: 1.5 MG 1 IN 1 D
     Route: 048
  7. PROGRAF [Concomitant]
     Indication: IMMUNOSUPPRESSION
  8. PREDNISONE [Concomitant]
     Indication: IMMUNOSUPPRESSION
     Dosage: 15 MG, QD
     Route: 048
  9. LISINOPRIL [Concomitant]
     Indication: HYPERTENSION
     Dosage: 10 MG, QD
     Route: 048
     Dates: start: 20080519
  10. METOPROLOL TARTRATE [Concomitant]
     Indication: HYPERTENSION
     Dosage: 25 MG, BID
     Route: 048
     Dates: start: 20080516
  11. NOVOLOG [Concomitant]
     Indication: TYPE 1 DIABETES MELLITUS
     Dosage: 9 U DAILY
     Route: 058
     Dates: start: 20080701
  12. DIFLUCAN [Concomitant]
     Indication: ANTIFUNGAL PROPHYLAXIS
     Dosage: 200 MBQ, QD
     Route: 065
     Dates: start: 20080516
  13. AMBIEN [Concomitant]
     Indication: SLEEP DISORDER
     Route: 065
  14. BACTRIM [Concomitant]
     Indication: INFECTION PROPHYLAXIS
     Route: 065
  15. CALCIUM PLUS VITAMIN D [Concomitant]
     Indication: BONE DENSITY DECREASED
     Route: 065
  16. COLACE [Concomitant]
     Indication: CONSTIPATION PROPHYLAXIS
     Dosage: UNK
     Route: 065
  17. EFFEXOR [Concomitant]
     Indication: DEPRESSION
     Dosage: UNK
     Route: 065
  18. IBUPROFEN [Concomitant]
     Indication: PAIN
     Route: 065
  19. MAGNESIUM OXIDE [Concomitant]
     Indication: PROPHYLAXIS
     Route: 065
  20. MULTI-VITAMIN [Concomitant]
     Indication: VITAMIN SUPPLEMENTATION
     Route: 065
  21. PHENERGAN [Concomitant]
     Indication: NAUSEA
     Route: 065
  22. ULTRAM [Concomitant]
     Indication: PAIN
     Route: 065
  23. VALCYTE [Concomitant]
     Indication: CYTOMEGALOVIRUS INFECTION
     Dosage: UNK
     Route: 065
  24. ESOMEPRAZOLE [Concomitant]
     Indication: GASTROOESOPHAGEAL REFLUX PROPHYLAXIS
     Route: 065
  25. REGULAR INSULIN [Concomitant]
     Indication: DIABETES MELLITUS
     Route: 065
  26. KAYEXALATE [Concomitant]
     Indication: HYPERKALAEMIA
     Route: 065
  27. LANTUS [Concomitant]
     Indication: DIABETES MELLITUS
     Route: 065
  28. NIFEDIPINE [Concomitant]
     Indication: HYPERTENSION
     Dosage: UNK
     Route: 065
  29. OXYCODONE [Concomitant]
     Indication: COMPLICATIONS OF TRANSPLANT SURGERY
     Route: 065

REACTIONS (4)
  - HEPATIC ARTERY OCCLUSION [None]
  - HYPOGLYCAEMIC SEIZURE [None]
  - LIVER ABSCESS [None]
  - RENAL FAILURE ACUTE [None]
